FAERS Safety Report 5204523-7 (Version None)
Quarter: 2007Q1

REPORT INFORMATION
  Report Type: 
  Country: None (occurrence: None)
  Receive Date: 20070110
  Receipt Date: 20060426
  Transmission Date: 20070707
  Serious: No
  Sender: FDA-Public Use
  Company Number: US-BRISTOL-MYERS SQUIBB COMPANY-13358536

PATIENT

DRUGS (1)
  1. ABILIFY [Suspect]
     Dosage: DOSE VALUE: 5 MG OR 10 MG
     Route: 048
     Dates: start: 20051101

REACTIONS (2)
  - BLOOD TRIGLYCERIDES INCREASED [None]
  - LIPIDS ABNORMAL [None]
